FAERS Safety Report 8251569-0 (Version None)
Quarter: 2012Q2

REPORT INFORMATION
  Report Type: 
  Country: None (occurrence: None)
  Receive Date: 20120402
  Receipt Date: 20120326
  Transmission Date: 20120825
  Serious: Yes (Other)
  Sender: FDA-Public Use
  Company Number: CA-PFIZER INC-2012026087

PATIENT
  Sex: Female

DRUGS (3)
  1. XALATAN [Suspect]
     Indication: GLAUCOMA
     Dosage: 1 DROP IN EACH EYE DAILY
     Route: 047
  2. AZARGA [Suspect]
     Dosage: UNK
     Dates: end: 20110601
  3. TOBRAMYCIN [Suspect]
     Indication: EYE INFECTION
     Dosage: 1 GTT, 4X/DAY

REACTIONS (3)
  - LASER THERAPY [None]
  - EYE PAIN [None]
  - EYE INFECTION [None]
